FAERS Safety Report 26112197 (Version 1)
Quarter: 2025Q4

REPORT INFORMATION
  Report Type: Spontaneous
  Country: US (occurrence: US)
  Receive Date: 20251202
  Receipt Date: 20251202
  Transmission Date: 20260117
  Serious: No
  Sender: SPRINGWORKS THERAPEUTIC
  Company Number: US-SPRINGWORKS THERAPEUTICS-SW-003259

PATIENT
  Sex: Male

DRUGS (2)
  1. GOMEKLI [Suspect]
     Active Substance: MIRDAMETINIB
     Indication: Neurofibromatosis
     Dosage: UNK, 21 DAYS ON AND 7 DAYS OFF
  2. GOMEKLI [Suspect]
     Active Substance: MIRDAMETINIB
     Dosage: UNK, CONTINUOUSLY, NO OFF PERIOD.

REACTIONS (4)
  - Abnormal behaviour [Unknown]
  - Insomnia [Unknown]
  - Weight decreased [Recovered/Resolved]
  - Off label use [Unknown]
